FAERS Safety Report 8906395 (Version 1)
Quarter: 2012Q4

REPORT INFORMATION
  Report Type: Spontaneous
  Country: US (occurrence: None)
  Receive Date: 20121109
  Receipt Date: 20121109
  Transmission Date: 20130627
  Serious: No
  Sender: FDA-Public Use
  Company Number: None

PATIENT
  Age: 61 Year
  Sex: Female
  Weight: 77.11 kg

DRUGS (1)
  1. RECLAST [Suspect]
     Dosage: 1 x yearly

REACTIONS (3)
  - Pain [None]
  - Pyrexia [None]
  - Bone pain [None]
